FAERS Safety Report 10237435 (Version 1)
Quarter: 2014Q2

REPORT INFORMATION
  Report Type: Report from Study
  Country: SG (occurrence: SG)
  Receive Date: 20140615
  Receipt Date: 20140615
  Transmission Date: 20141212
  Serious: Yes (Hospitalization)
  Sender: FDA-Public Use
  Company Number: SG-009507513-1406SGP005323

PATIENT
  Age: 47 Year
  Sex: Male
  Weight: 72.79 kg

DRUGS (8)
  1. DEXAMETHASONE [Suspect]
     Indication: DIFFUSE LARGE B-CELL LYMPHOMA
     Dosage: 40 MG, CYCLICAL (FOR 4 DAYS, SECOND DOSE IN SERIES)
     Route: 048
     Dates: start: 20100831
  2. INOTUZUMAB OZOGAMICIN [Suspect]
     Indication: DIFFUSE LARGE B-CELL LYMPHOMA
     Dosage: 0.8 MG/M2, CYCLICAL (ONCE, SECOND DOSE IN SERIES)
     Route: 042
     Dates: start: 20100831
  3. CISPLATIN [Suspect]
     Indication: DIFFUSE LARGE B-CELL LYMPHOMA
     Dosage: 50 MG/M2, CYCLICAL (ONCE, SECOND DOSE IN SERIES)
     Route: 042
     Dates: start: 20100831, end: 20101026
  4. GEMCITABINE [Suspect]
     Indication: DIFFUSE LARGE B-CELL LYMPHOMA
     Dosage: 500 MG/M2, CYCLICAL (ONCE, SECOND DOSE IN SERIES)
     Route: 042
     Dates: start: 20100831
  5. RITUXIMAB [Suspect]
     Indication: DIFFUSE LARGE B-CELL LYMPHOMA
     Dosage: 375 MG/M2, CYCLICAL (ONCE, SECOND DOSE IN SERIES)
     Route: 042
     Dates: start: 20100831
  6. SENNOSIDES [Concomitant]
     Indication: CONSTIPATION
     Dosage: 7.5 MG, CYCLICAL (TWO TABLETS ON DAY 8)
     Route: 048
     Dates: start: 20100927, end: 20101004
  7. ACYCLOVIR [Concomitant]
     Indication: PROPHYLAXIS
     Dosage: 400 MG, BID
     Route: 048
     Dates: start: 20100831
  8. FAMOTIDINE [Concomitant]
     Indication: PROPHYLAXIS
     Dosage: 20 MG, BID
     Dates: start: 20100831

REACTIONS (1)
  - Neutropenic sepsis [Recovered/Resolved]
